FAERS Safety Report 20482588 (Version 1)
Quarter: 2022Q1

REPORT INFORMATION
  Report Type: Spontaneous
  Country: AR (occurrence: AR)
  Receive Date: 20220217
  Receipt Date: 20220217
  Transmission Date: 20220424
  Serious: Yes (Hospitalization)
  Sender: FDA-Public Use
  Company Number: AR-SUN PHARMACEUTICAL INDUSTRIES LTD-2022R1-326489

PATIENT
  Age: 5 Year
  Sex: Male
  Weight: 14.5 kg

DRUGS (1)
  1. VALPROIC ACID [Suspect]
     Active Substance: VALPROIC ACID
     Indication: Epilepsy
     Dosage: UNK
     Route: 065

REACTIONS (3)
  - Acute hepatic failure [Recovering/Resolving]
  - Encephalopathy [Recovered/Resolved]
  - Cutaneous mucormycosis [Recovering/Resolving]
